FAERS Safety Report 7081287-6 (Version None)
Quarter: 2010Q4

REPORT INFORMATION
  Report Type: 
  Country: None (occurrence: None)
  Receive Date: 20101103
  Receipt Date: 20101026
  Transmission Date: 20110411
  Serious: Yes (Hospitalization, Disabling, Other)
  Sender: FDA-Public Use
  Company Number: US-AMGEN-USASP2010001662

PATIENT

DRUGS (2)
  1. ENBREL [Suspect]
     Indication: RHEUMATOID ARTHRITIS
     Dates: start: 19990101, end: 20050101
  2. RITUXAN [Concomitant]

REACTIONS (5)
  - ARTHRALGIA [None]
  - DISABILITY [None]
  - FATIGUE [None]
  - INTRACRANIAL ANEURYSM [None]
  - THERAPEUTIC RESPONSE DECREASED [None]
